FAERS Safety Report 8512507-6 (Version None)
Quarter: 2012Q3

REPORT INFORMATION
  Report Type: 
  Country: None (occurrence: None)
  Receive Date: 20120716
  Receipt Date: 20120712
  Transmission Date: 20120928
  Serious: Yes (Death)
  Sender: FDA-Public Use
  Company Number: JP-GLAXOSMITHKLINE-B0804204A

PATIENT
  Sex: Female

DRUGS (10)
  1. RELENZA [Suspect]
     Indication: ANTIVIRAL PROPHYLAXIS
     Dosage: 10MG PER DAY
     Route: 055
     Dates: start: 20120316, end: 20120316
  2. MUCOSTA [Concomitant]
     Indication: GASTROENTERITIS BACTERIAL
     Dosage: 3IUAX PER DAY
     Route: 048
     Dates: start: 20120315, end: 20120315
  3. SOLDEM [Concomitant]
     Indication: GASTROENTERITIS BACTERIAL
     Dosage: 500ML PER DAY
     Route: 042
     Dates: start: 20120315, end: 20120315
  4. CEFTRIAXONE SODIUM [Concomitant]
     Indication: PYREXIA
     Dosage: 2G PER DAY
     Route: 042
     Dates: start: 20120316, end: 20120316
  5. PELEX [Concomitant]
     Indication: GASTROENTERITIS BACTERIAL
     Dosage: 3IUAX PER DAY
     Route: 048
     Dates: start: 20120315, end: 20120315
  6. LEVOFLOXACIN [Concomitant]
     Indication: GASTROENTERITIS BACTERIAL
     Dosage: 3IUAX PER DAY
     Route: 048
     Dates: start: 20120315, end: 20120315
  7. ACETAMINOPHEN [Concomitant]
     Indication: GASTROENTERITIS BACTERIAL
     Dosage: 3IUAX PER DAY
     Route: 048
     Dates: start: 20120315, end: 20120315
  8. SOLDEM [Concomitant]
     Indication: PYREXIA
     Dosage: 1000ML PER DAY
     Route: 042
     Dates: start: 20120316, end: 20120316
  9. EXACIN [Concomitant]
     Indication: GASTROENTERITIS BACTERIAL
     Dosage: 1IUAX PER DAY
     Route: 042
     Dates: start: 20120316, end: 20120316
  10. UNKNOWN DRUG [Concomitant]
     Indication: GASTROENTERITIS BACTERIAL
     Dosage: 3IUAX PER DAY
     Route: 048
     Dates: start: 20120315, end: 20120315

REACTIONS (9)
  - JOINT STIFFNESS [None]
  - ANAPHYLACTIC SHOCK [None]
  - CARDIAC FAILURE ACUTE [None]
  - ACUTE RESPIRATORY FAILURE [None]
  - DEPRESSED LEVEL OF CONSCIOUSNESS [None]
  - DYSPNOEA [None]
  - PULSE ABSENT [None]
  - MYOCARDITIS [None]
  - HYPERSENSITIVITY [None]
